FAERS Safety Report 4810984-5 (Version None)
Quarter: 2005Q4

REPORT INFORMATION
  Report Type: 
  Country: None (occurrence: None)
  Receive Date: 20051025
  Receipt Date: 20051018
  Transmission Date: 20060501
  Serious: No
  Sender: FDA-Public Use
  Company Number: STA-AE-05-029

PATIENT
  Age: 62 Year
  Sex: Female

DRUGS (3)
  1. DILTIAZEM HCL [Suspect]
     Indication: HYPERTENSION
     Dosage: 240MG/D
  2. ENALAPRIL MALEATE [Concomitant]
  3. INDAPAMIDE [Concomitant]

REACTIONS (5)
  - ARRHYTHMIA [None]
  - BLOOD PRESSURE SYSTOLIC INCREASED [None]
  - EXTRASYSTOLES [None]
  - NODAL RHYTHM [None]
  - SINUS BRADYCARDIA [None]
